FAERS Safety Report 24314442 (Version 2)
Quarter: 2024Q3

REPORT INFORMATION
  Report Type: Spontaneous
  Country: MX (occurrence: MX)
  Receive Date: 20240913
  Receipt Date: 20240927
  Transmission Date: 20241017
  Serious: Yes (Other)
  Sender: NOVO NORDISK
  Company Number: MX-NOVOPROD-1278794

PATIENT
  Age: 56 Year
  Sex: Male

DRUGS (1)
  1. NOVOEIGHT [Suspect]
     Active Substance: ANTIHEMOPHILIC FACTOR, HUMAN RECOMBINANT
     Indication: Factor VIII deficiency
     Dosage: ONCE A WEEK (DOSAGE UNKNOWN)

REACTIONS (3)
  - Eye haemorrhage [Recovering/Resolving]
  - Peripheral swelling [Recovering/Resolving]
  - Haemarthrosis [Recovering/Resolving]
